FAERS Safety Report 4585978-8 (Version None)
Quarter: 2005Q1

REPORT INFORMATION
  Report Type: 
  Country: None (occurrence: None)
  Receive Date: 20050125
  Receipt Date: 20040909
  Transmission Date: 20050727
  Serious: No
  Sender: FDA-Public Use
  Company Number: USA040567883

PATIENT
  Age: 81 Year
  Sex: Female
  Weight: 66 kg

DRUGS (5)
  1. FORTEO [Suspect]
     Indication: OSTEOPOROSIS
     Dosage: 20 UG DAY
     Dates: start: 20040407, end: 20040904
  2. CELEBREX [Concomitant]
  3. PREVACID [Concomitant]
  4. CALCIUM GLUCONATE [Concomitant]
  5. FOSAMAX [Concomitant]

REACTIONS (11)
  - ASTHENIA [None]
  - DEFAECATION URGENCY [None]
  - DIARRHOEA [None]
  - DYSPNOEA [None]
  - FEELING ABNORMAL [None]
  - HEART RATE INCREASED [None]
  - INITIAL INSOMNIA [None]
  - INJECTION SITE VESICLES [None]
  - MUSCLE SPASMS [None]
  - PAIN IN EXTREMITY [None]
  - PALPITATIONS [None]
